FAERS Safety Report 20300267 (Version 1)
Quarter: 2022Q1

REPORT INFORMATION
  Report Type: Spontaneous
  Country: US (occurrence: US)
  Receive Date: 20220105
  Receipt Date: 20220105
  Transmission Date: 20220423
  Serious: Yes (Hospitalization)
  Sender: FDA-Public Use
  Company Number: US-MYLANLABS-2022M1001015

PATIENT
  Age: 56 Year
  Sex: Male

DRUGS (8)
  1. ACETAMINOPHEN [Suspect]
     Active Substance: ACETAMINOPHEN
     Indication: Lumbar radiculopathy
     Dosage: 975 MILLIGRAM
     Route: 048
  2. ACETAMINOPHEN [Suspect]
     Active Substance: ACETAMINOPHEN
     Indication: Pain
  3. KETOROLAC [Suspect]
     Active Substance: KETOROLAC TROMETHAMINE
     Indication: Lumbar radiculopathy
     Dosage: 15 MILLIGRAM
     Route: 030
  4. KETOROLAC [Suspect]
     Active Substance: KETOROLAC TROMETHAMINE
     Indication: Pain
  5. LIDOCAINE [Suspect]
     Active Substance: LIDOCAINE
     Indication: Lumbar radiculopathy
     Dosage: UNK
     Route: 061
  6. LIDOCAINE [Suspect]
     Active Substance: LIDOCAINE
     Indication: Pain
  7. CYCLOBENZAPRINE [Suspect]
     Active Substance: CYCLOBENZAPRINE
     Indication: Lumbar radiculopathy
     Dosage: 10 MILLIGRAM
     Route: 048
  8. CYCLOBENZAPRINE [Suspect]
     Active Substance: CYCLOBENZAPRINE
     Indication: Pain

REACTIONS (1)
  - Drug ineffective [Unknown]
